FAERS Safety Report 10984325 (Version 2)
Quarter: 2015Q3

REPORT INFORMATION
  Report Type: Spontaneous
  Country: US (occurrence: US)
  Receive Date: 20150403
  Receipt Date: 20150922
  Transmission Date: 20151125
  Serious: Yes (Other)
  Sender: FDA-Public Use
  Company Number: US-ELI_LILLY_AND_COMPANY-US201503008936

PATIENT
  Sex: Female
  Weight: 76 kg

DRUGS (18)
  1. KRILL OIL [Concomitant]
     Active Substance: DIETARY SUPPLEMENT
     Dosage: 24 MG, QD
     Route: 048
     Dates: start: 20131218
  2. TARCEVA [Concomitant]
     Active Substance: ERLOTINIB HYDROCHLORIDE
     Indication: PRODUCT USED FOR UNKNOWN INDICATION
  3. DEXAMETHASONE. [Concomitant]
     Active Substance: DEXAMETHASONE
     Indication: PRODUCT USED FOR UNKNOWN INDICATION
     Dosage: UNK UNK, CYCLICAL
     Route: 048
     Dates: start: 20141028
  4. KRILL OIL [Concomitant]
     Active Substance: DIETARY SUPPLEMENT
     Dosage: 50 MG, QD
     Route: 048
     Dates: start: 20131218
  5. ALIMTA [Suspect]
     Active Substance: PEMETREXED DISODIUM
     Indication: SMALL CELL LUNG CANCER
     Dosage: 500 MG/M2, CYCLICAL, 21 DAYS
     Dates: start: 20130614, end: 20131010
  6. XALKORI [Suspect]
     Active Substance: CRIZOTINIB
     Indication: ADENOCARCINOMA
     Dosage: 250 MG, BID
     Route: 048
  7. KRILL OIL [Concomitant]
     Active Substance: DIETARY SUPPLEMENT
     Indication: PRODUCT USED FOR UNKNOWN INDICATION
     Dosage: 300 MG, QD
     Route: 048
     Dates: start: 20131218
  8. INFED [Concomitant]
     Active Substance: IRON DEXTRAN
     Indication: PRODUCT USED FOR UNKNOWN INDICATION
     Dosage: UNK, UNKNOWN
     Route: 042
  9. SYNTHROID [Concomitant]
     Active Substance: LEVOTHYROXINE SODIUM
     Indication: PRODUCT USED FOR UNKNOWN INDICATION
     Dosage: 88 UG, QD
     Route: 048
     Dates: start: 20130607
  10. GEMZAR [Suspect]
     Active Substance: GEMCITABINE HYDROCHLORIDE
     Dosage: 850 MG/M2, CYCLICAL
     Route: 065
     Dates: start: 20140929, end: 20141020
  11. GEMZAR [Suspect]
     Active Substance: GEMCITABINE HYDROCHLORIDE
     Dosage: 850 MG/M2, CYCLICAL
     Route: 065
     Dates: start: 20141020, end: 20141103
  12. CARBOPLATIN. [Concomitant]
     Active Substance: CARBOPLATIN
     Dosage: 4 DF, UNKNOWN
     Route: 065
     Dates: start: 20140929, end: 20141020
  13. EMEND [Concomitant]
     Active Substance: APREPITANT
     Indication: PRODUCT USED FOR UNKNOWN INDICATION
     Dosage: 125 MG, QD
     Route: 048
     Dates: start: 20141027
  14. GEMZAR [Suspect]
     Active Substance: GEMCITABINE HYDROCHLORIDE
     Indication: SMALL CELL LUNG CANCER
     Dosage: 800 MG/M2, CYCLICAL
     Route: 065
     Dates: start: 20140909, end: 20140930
  15. SANCUSO [Concomitant]
     Active Substance: GRANISETRON
     Indication: PRODUCT USED FOR UNKNOWN INDICATION
     Dosage: 3.1 MG, CYCLICAL
     Route: 062
     Dates: start: 20130628
  16. CARBOPLATIN. [Concomitant]
     Active Substance: CARBOPLATIN
     Indication: PRODUCT USED FOR UNKNOWN INDICATION
     Dosage: 5 DF, CYCLICAL
     Route: 065
     Dates: start: 20130614, end: 20131010
  17. EMEND [Concomitant]
     Active Substance: APREPITANT
     Dosage: 80 MG, BID
     Route: 048
     Dates: start: 20141027
  18. KRILL OIL [Concomitant]
     Active Substance: DIETARY SUPPLEMENT
     Dosage: 90 MG, QD
     Route: 048
     Dates: start: 20131218

REACTIONS (10)
  - Malignant neoplasm progression [Unknown]
  - Pleural effusion [Unknown]
  - Neutropenia [Unknown]
  - Dyspnoea [Unknown]
  - Nausea [Unknown]
  - Vomiting [Unknown]
  - Dehydration [Unknown]
  - Anaemia [Unknown]
  - Drug ineffective [Unknown]
  - Malaise [Unknown]
